FAERS Safety Report 11728599 (Version 1)
Quarter: 2015Q4

REPORT INFORMATION
  Report Type: Spontaneous
  Country: BR (occurrence: BR)
  Receive Date: 20151112
  Receipt Date: 20151112
  Transmission Date: 20160304
  Serious: Yes (Hospitalization, Other)
  Sender: FDA-Public Use
  Company Number: BR-ASTRAZENECA-2015SF08760

PATIENT
  Age: 84 Year
  Sex: Female
  Weight: 58 kg

DRUGS (5)
  1. SELOZOK [Suspect]
     Active Substance: METOPROLOL SUCCINATE
     Dosage: TWO TIMES A DAY
     Route: 048
     Dates: start: 2012
  2. NEXIUM [Suspect]
     Active Substance: ESOMEPRAZOLE MAGNESIUM
     Indication: CHRONIC GASTRITIS
     Dosage: DAILY
     Route: 048
     Dates: start: 2011
  3. VASTAREL [Concomitant]
     Active Substance: TRIMETAZIDINE DIHYDROCHLORIDE
     Dosage: TWO TIMES A DAY
     Route: 048
     Dates: start: 2012
  4. BRILINTA [Suspect]
     Active Substance: TICAGRELOR
     Route: 048
     Dates: start: 20151104
  5. ASPIRIN. [Concomitant]
     Active Substance: ASPIRIN
     Dosage: DAILY
     Route: 048
     Dates: start: 2013

REACTIONS (5)
  - Blood pressure inadequately controlled [Recovered/Resolved]
  - Weight decreased [Recovered/Resolved]
  - Dizziness [Not Recovered/Not Resolved]
  - Decreased appetite [Recovered/Resolved]
  - Memory impairment [Not Recovered/Not Resolved]

NARRATIVE: CASE EVENT DATE: 2015
